FAERS Safety Report 7272284-6 (Version None)
Quarter: 2011Q1

REPORT INFORMATION
  Report Type: 
  Country: None (occurrence: None)
  Receive Date: 20110203
  Receipt Date: 20110125
  Transmission Date: 20110831
  Serious: Yes (Hospitalization)
  Sender: FDA-Public Use
  Company Number: PHHO2010TW09419

PATIENT
  Sex: Male
  Weight: 61.5 kg

DRUGS (11)
  1. BLINDED NO TREATMENT RECEIVED [Suspect]
     Indication: CARDIAC FAILURE
     Dosage: CODE NOT BROKEN
     Route: 048
     Dates: start: 20100202
  2. METFORMIN HCL [Concomitant]
  3. COMPARATOR ENALAPRIL [Suspect]
     Indication: CARDIAC FAILURE
     Dosage: UNK
     Route: 048
     Dates: start: 20091208, end: 20100201
  4. FUROSEMIDE [Concomitant]
     Indication: CARDIAC FAILURE CONGESTIVE
  5. CARVEDILOL [Concomitant]
     Indication: CARDIAC FAILURE CONGESTIVE
  6. ALISKIREN [Suspect]
     Indication: CARDIAC FAILURE
     Route: 048
  7. SPIRONOLACTONE [Concomitant]
     Indication: CARDIAC FAILURE CONGESTIVE
  8. BLINDED ALISKIREN [Suspect]
     Indication: CARDIAC FAILURE
     Dosage: CODE NOT BROKEN
     Route: 048
     Dates: start: 20100202
  9. CEFAZOLIN [Concomitant]
  10. BLINDED ENALAPRIL [Suspect]
     Indication: CARDIAC FAILURE
     Dosage: CODE NOT BROKEN
     Route: 048
     Dates: start: 20100202
  11. AMARYL [Concomitant]

REACTIONS (8)
  - CARDIAC PACEMAKER INSERTION [None]
  - PULMONARY OEDEMA [None]
  - BRONCHOPNEUMONIA [None]
  - OEDEMA PERIPHERAL [None]
  - DISEASE PROGRESSION [None]
  - CARDIAC FAILURE CONGESTIVE [None]
  - DYSPNOEA [None]
  - COUGH [None]
